FAERS Safety Report 9302932 (Version 1)
Quarter: 2013Q2

REPORT INFORMATION
  Report Type: Spontaneous
  Country: US (occurrence: None)
  Receive Date: 20130517
  Receipt Date: 20130517
  Transmission Date: 20140414
  Serious: Yes (Hospitalization, Other)
  Sender: FDA-Public Use
  Company Number: 2013P1005687

PATIENT
  Age: 58 Year
  Sex: Male

DRUGS (2)
  1. LITHIUM [Suspect]
     Indication: SCHIZOPHRENIA, PARANOID TYPE
  2. UNSPECIFIED PSYCHOTROPIC MEDICATIONS [Suspect]

REACTIONS (3)
  - Nephropathy toxic [None]
  - Nephrogenic diabetes insipidus [None]
  - Renal cyst [None]
